FAERS Safety Report 10286128 (Version 1)
Quarter: 2014Q3

REPORT INFORMATION
  Report Type: Spontaneous
  Country: US (occurrence: None)
  Receive Date: 20140707
  Receipt Date: 20140707
  Transmission Date: 20150326
  Serious: Yes (Death, Hospitalization)
  Sender: FDA-Public Use
  Company Number: None

PATIENT
  Age: 14 Year
  Sex: Male
  Weight: 55.1 kg

DRUGS (6)
  1. ONCASPAR [Suspect]
     Active Substance: PEGASPARGASE
     Dates: end: 20140505
  2. CYTARABINE. [Suspect]
     Active Substance: CYTARABINE
     Dates: end: 20140430
  3. DAUNORUBICIN [Suspect]
     Active Substance: DAUNORUBICIN
     Dates: end: 20140516
  4. METHOTREXATE [Suspect]
     Active Substance: METHOTREXATE
     Dates: end: 20140509
  5. PREDNISONE. [Suspect]
     Active Substance: PREDNISONE
     Dates: end: 20140518
  6. VINCRISTINE SULFATE. [Suspect]
     Active Substance: VINCRISTINE SULFATE

REACTIONS (9)
  - Coagulopathy [None]
  - Brain midline shift [None]
  - Brain oedema [None]
  - Subarachnoid haemorrhage [None]
  - Vasospasm [None]
  - Intracranial pressure increased [None]
  - Brain death [None]
  - Convulsion [None]
  - Subdural haematoma [None]

NARRATIVE: CASE EVENT DATE: 20140521
